FAERS Safety Report 9189346 (Version 5)
Quarter: 2014Q2

REPORT INFORMATION
  Report Type: Report from Study
  Country: BR (occurrence: BR)
  Receive Date: 20130326
  Receipt Date: 20140411
  Transmission Date: 20141212
  Serious: Yes (Other)
  Sender: FDA-Public Use
  Company Number: PHHY2012BR099430

PATIENT
  Sex: Female
  Weight: 63 kg

DRUGS (13)
  1. GALVUS MET [Suspect]
     Indication: TYPE 2 DIABETES MELLITUS
     Dosage: 2 DF (850 MG METF/ 50 MG VILD) (1 TABLET AT MORNING AND 1 TABLET AT NIGHT), DAILY
     Route: 048
     Dates: start: 2007
  2. GALVUS MET [Suspect]
     Dosage: 1 DF, (IN THE MORNING)
     Route: 048
     Dates: start: 20140401, end: 20140402
  3. GALVUS MET [Suspect]
     Dosage: 2 DF (850 MG METF/ 50 MG VILD), DAILY
     Route: 048
     Dates: start: 20140403
  4. DIOVAN AMLO FIX [Suspect]
     Indication: HYPERTENSION
     Dosage: 1 DF (160 MG VALS/ 05 MG AMLO, DAILY
     Dates: start: 2005
  5. DIOVAN AMLO FIX [Suspect]
     Dosage: 1 DF (160 MG VALS/10 MG AMLO), , QD (IN THE MORNING)
     Route: 048
     Dates: start: 201212, end: 2013
  6. GLIMEPIRIDE [Suspect]
     Indication: DIABETES MELLITUS
     Dosage: 1 DF (1 MG) AT LUNCH, DAILY
     Route: 048
  7. ZETSIM [Suspect]
     Indication: BLOOD CHOLESTEROL INCREASED
     Dosage: 1 DF, AT NIGHT
     Route: 048
  8. SOMALGIN CARDIO [Suspect]
     Indication: CARDIOVASCULAR EVENT PROPHYLAXIS
     Dosage: 1 TABLET (200 MG) AFTER LUNCH, DAILY
     Route: 048
  9. SOMALGIN CARDIO [Suspect]
     Indication: CARDIAC DISORDER
  10. FRONTAL [Suspect]
     Indication: AGITATION
     Dosage: 1 TABLET (0.2 MG) AT NIGHT
     Route: 048
  11. VYTORIN [Suspect]
     Indication: BLOOD CHOLESTEROL INCREASED
     Dosage: 1 TABLET (10 MG EZET/20 MG SIMVA) AT NIGHT
     Route: 048
  12. SELOZOK [Concomitant]
     Indication: HYPERTENSION
     Dosage: 1 TABLET  (50 MG) AT MORNING
     Route: 048
     Dates: start: 2005
  13. SIMVASTATIN [Concomitant]
     Indication: BLOOD CHOLESTEROL INCREASED
     Dosage: 1 TABLET (20 MG) DAILY, AT NIGHT
     Route: 048

REACTIONS (18)
  - Psoriasis [Not Recovered/Not Resolved]
  - Wound [Not Recovered/Not Resolved]
  - Skin exfoliation [Not Recovered/Not Resolved]
  - Pruritus [Not Recovered/Not Resolved]
  - Erythema [Not Recovered/Not Resolved]
  - Hypertension [Unknown]
  - Osteoarthritis [Not Recovered/Not Resolved]
  - Bone disorder [Unknown]
  - Arthropathy [Unknown]
  - Arthritis [Recovering/Resolving]
  - Frequent bowel movements [Not Recovered/Not Resolved]
  - Labyrinthitis [Not Recovered/Not Resolved]
  - Blood cholesterol decreased [Unknown]
  - Hypoaesthesia [Not Recovered/Not Resolved]
  - Malaise [Not Recovered/Not Resolved]
  - Dizziness [Unknown]
  - Flatulence [Not Recovered/Not Resolved]
  - Nausea [Not Recovered/Not Resolved]
